FAERS Safety Report 9962873 (Version 2)
Quarter: 2014Q1

REPORT INFORMATION
  Report Type: Report from Study
  Country: US (occurrence: US)
  Receive Date: 20140305
  Receipt Date: 20140305
  Transmission Date: 20141002
  Serious: Yes (Other)
  Sender: FDA-Public Use
  Company Number: US-ABBVIE-13P-163-1062826-00

PATIENT
  Age: 54 Year
  Sex: Male

DRUGS (3)
  1. HUMIRA [Suspect]
     Indication: CROHN^S DISEASE
     Dates: start: 20130119, end: 20130329
  2. HUMIRA [Suspect]
     Indication: POUCHITIS
     Route: 058
     Dates: start: 201306
  3. HUMIRA [Suspect]
     Indication: ARTHRALGIA

REACTIONS (5)
  - Limb operation [Not Recovered/Not Resolved]
  - Drug dose omission [Unknown]
  - Injection site bruising [Recovering/Resolving]
  - Injection site pain [Recovered/Resolved]
  - Arthralgia [Unknown]
